FAERS Safety Report 8125965-6 (Version None)
Quarter: 2012Q1

REPORT INFORMATION
  Report Type: 
  Country: None (occurrence: None)
  Receive Date: 20120206
  Receipt Date: 20120122
  Transmission Date: 20120608
  Serious: Yes (Hospitalization, Other)
  Sender: FDA-Public Use
  Company Number: IL-1190137

PATIENT
  Age: 24 Month
  Sex: Male
  Weight: 12 kg

DRUGS (2)
  1. TOBREX [Suspect]
     Indication: EYE INFECTION
     Dosage: (OPHTHALMIC)
     Route: 047
  2. SYNTOMYCIN [Concomitant]

REACTIONS (4)
  - PNEUMONIA [None]
  - ANAPHYLACTIC SHOCK [None]
  - DYSPNOEA [None]
  - SWELLING FACE [None]
